APPROVED DRUG PRODUCT: DILTIAZEM HYDROCHLORIDE
Active Ingredient: DILTIAZEM HYDROCHLORIDE
Strength: 5MG/ML
Dosage Form/Route: INJECTABLE;INJECTION
Application: A075749 | Product #001
Applicant: INTERNATIONAL MEDICATION SYSTEMS LTD
Approved: Nov 21, 2001 | RLD: No | RS: No | Type: DISCN